FAERS Safety Report 20505750 (Version 1)
Quarter: 2022Q1

REPORT INFORMATION
  Report Type: Spontaneous
  Country: US (occurrence: None)
  Receive Date: 20220223
  Receipt Date: 20220223
  Transmission Date: 20220424
  Serious: No
  Sender: FDA-Public Use
  Company Number: US-Hikma Pharmaceuticals USA Inc.-US-H14001-22-00343

PATIENT

DRUGS (1)
  1. FLUTICASONE PROPIONATE [Suspect]
     Active Substance: FLUTICASONE PROPIONATE
     Indication: Seasonal allergy
     Dosage: UNKNOWN
     Route: 045

REACTIONS (7)
  - Migraine [Unknown]
  - Nausea [Unknown]
  - Anosmia [Unknown]
  - Ageusia [Unknown]
  - Rhinorrhoea [Unknown]
  - Sinusitis [Unknown]
  - Off label use [Unknown]
